FAERS Safety Report 9149723 (Version 1)
Quarter: 2013Q1

REPORT INFORMATION
  Report Type: Spontaneous
  Country: US (occurrence: None)
  Receive Date: 20130301
  Receipt Date: 20130301
  Transmission Date: 20140127
  Serious: Yes (Hospitalization)
  Sender: FDA-Public Use
  Company Number: None

PATIENT
  Age: 60 Year
  Sex: Male
  Weight: 86.5 kg

DRUGS (2)
  1. CEFTRIAXONE [Suspect]
     Indication: PNEUMONIA
     Dosage: 2 GM  BID  IV
     Route: 042
     Dates: start: 20130209, end: 20130216
  2. CEFTRIAXONE [Suspect]
     Indication: ENDOCARDITIS
     Dosage: 2 GM  BID  IV
     Route: 042
     Dates: start: 20130209, end: 20130216

REACTIONS (2)
  - Pyrexia [None]
  - Eosinophilia [None]
